FAERS Safety Report 20602675 (Version 2)
Quarter: 2022Q1

REPORT INFORMATION
  Report Type: Spontaneous
  Country: PT (occurrence: PT)
  Receive Date: 20220316
  Receipt Date: 20220322
  Transmission Date: 20220423
  Serious: Yes (Hospitalization, Other)
  Sender: FDA-Public Use
  Company Number: PT-ABBVIE-22K-130-4313242-00

PATIENT
  Age: 54 Year
  Sex: Female

DRUGS (2)
  1. CARBIDOPA\LEVODOPA [Suspect]
     Active Substance: CARBIDOPA\LEVODOPA
     Indication: Parkinsonism
     Dosage: 25/100 MG
     Route: 050
  2. CARBIDOPA\LEVODOPA [Suspect]
     Active Substance: CARBIDOPA\LEVODOPA

REACTIONS (8)
  - Psychomotor hyperactivity [Unknown]
  - Erotomanic delusion [Unknown]
  - Decreased appetite [Unknown]
  - Aggression [Unknown]
  - Psychotic disorder [Unknown]
  - Insomnia [Unknown]
  - Hallucination, auditory [Recovering/Resolving]
  - Drug ineffective [Unknown]
